FAERS Safety Report 11642354 (Version 1)
Quarter: 2015Q4

REPORT INFORMATION
  Report Type: Report from Study
  Country: CN (occurrence: CN)
  Receive Date: 20151019
  Receipt Date: 20151019
  Transmission Date: 20160304
  Serious: Yes (Hospitalization, Other)
  Sender: FDA-Public Use
  Company Number: CN-GILEAD-2015-0177099

PATIENT
  Age: 56 Year
  Sex: Male

DRUGS (1)
  1. ADEFOVIR DIPIVOXIL. [Suspect]
     Active Substance: ADEFOVIR DIPIVOXIL
     Indication: PRODUCT USED FOR UNKNOWN INDICATION
     Dosage: UNK UNKNOWN, UNK
     Route: 065

REACTIONS (12)
  - Blood alkaline phosphatase increased [Unknown]
  - Hyperphosphaturia [Recovered/Resolved]
  - Arthralgia [Unknown]
  - Protein urine present [Unknown]
  - Osteomalacia [Recovered/Resolved]
  - Glomerular filtration rate decreased [Unknown]
  - Bone pain [Unknown]
  - Hypophosphataemia [Unknown]
  - Joint swelling [Unknown]
  - Urine calcium increased [Unknown]
  - Pain [Unknown]
  - Blood creatinine decreased [Unknown]
